FAERS Safety Report 5370368-0 (Version None)
Quarter: 2007Q2

REPORT INFORMATION
  Report Type: 
  Country: None (occurrence: None)
  Receive Date: 20070626
  Receipt Date: 20061221
  Transmission Date: 20071010
  Serious: No
  Sender: FDA-Public Use
  Company Number: US-AMGEN-US204479

PATIENT
  Sex: Female

DRUGS (14)
  1. ARANESP [Suspect]
     Indication: RENAL TRANSPLANT
     Route: 065
     Dates: start: 20050101
  2. PREDNISONE TAB [Concomitant]
     Route: 065
  3. COZAAR [Concomitant]
     Route: 065
  4. LIPITOR [Concomitant]
     Route: 065
  5. CELLCEPT [Concomitant]
     Route: 065
  6. RAPAMUNE [Concomitant]
     Route: 065
  7. LABETALOL HCL [Concomitant]
     Route: 065
  8. PREVACID [Concomitant]
     Route: 065
  9. ROCALTROL [Concomitant]
     Route: 065
  10. LASIX [Concomitant]
     Route: 065
  11. COUMADIN [Concomitant]
     Route: 065
  12. PROGESTERONE [Concomitant]
     Route: 065
  13. ALLEGRA [Concomitant]
     Route: 065
  14. VENOFER [Concomitant]
     Route: 065

REACTIONS (1)
  - THERAPEUTIC RESPONSE DECREASED [None]
